FAERS Safety Report 10706658 (Version 2)
Quarter: 2015Q1

REPORT INFORMATION
  Report Type: Spontaneous
  Country: JP (occurrence: JP)
  Receive Date: 20150113
  Receipt Date: 20150113
  Transmission Date: 20150721
  Serious: Yes (Death, Other)
  Sender: FDA-Public Use
  Company Number: JP-NOVOPROD-433818

PATIENT
  Age: 63 Year
  Sex: Male

DRUGS (2)
  1. NOVORAPID [Suspect]
     Active Substance: INSULIN ASPART
     Indication: DIABETES MELLITUS
     Dosage: UNK
     Route: 058
  2. NOVORAPID [Suspect]
     Active Substance: INSULIN ASPART
     Dosage: 900 IU, QD
     Route: 058
     Dates: start: 201412

REACTIONS (3)
  - Anaphylactic reaction [Fatal]
  - Completed suicide [Fatal]
  - Intentional overdose [Unknown]

NARRATIVE: CASE EVENT DATE: 201412
